FAERS Safety Report 9695928 (Version 2)
Quarter: 2014Q1

REPORT INFORMATION
  Report Type: Spontaneous
  Country: IT (occurrence: IT)
  Receive Date: 20131119
  Receipt Date: 20140130
  Transmission Date: 20141002
  Serious: Yes (Hospitalization)
  Sender: FDA-Public Use
  Company Number: IT-ROCHE-1305827

PATIENT
  Age: 52 Year
  Sex: Male
  Weight: 75 kg

DRUGS (2)
  1. COPEGUS [Suspect]
     Indication: CHRONIC HEPATITIS C
     Route: 048
     Dates: start: 20130601, end: 20130825
  2. PEGINTRON [Concomitant]
     Indication: CHRONIC HEPATITIS C
     Route: 058
     Dates: start: 20130601, end: 20130825

REACTIONS (2)
  - Paraesthesia [Recovered/Resolved]
  - Pruritus generalised [Recovered/Resolved]
